FAERS Safety Report 5162922-6 (Version None)
Quarter: 2006Q4

REPORT INFORMATION
  Report Type: 
  Country: None (occurrence: None)
  Receive Date: 20061201
  Receipt Date: 20061127
  Transmission Date: 20070319
  Serious: Yes (Death)
  Sender: FDA-Public Use
  Company Number: US-SANOFI-SYNTHELABO-F03200600258

PATIENT
  Age: 58 Year
  Sex: Female
  Weight: 49.9 kg

DRUGS (15)
  1. PHENERGAN [Concomitant]
     Dosage: 25 MG PRN Q6H
     Route: 048
  2. ZOFRAN [Concomitant]
     Route: 048
  3. NEULASTA [Concomitant]
     Dosage: 6 MG/0.6 ML SUBQ. SELF ADMINISTRATION ON 12-OCT-2006
     Route: 058
  4. LEXAPRO [Concomitant]
     Route: 048
  5. POTASSIUM CHLORIDE [Concomitant]
     Route: 048
  6. LASIX [Concomitant]
     Route: 048
  7. MULTI-VITAMIN [Concomitant]
     Route: 048
  8. TOPROL-XL [Concomitant]
     Route: 048
  9. LORTAB [Concomitant]
     Dosage: 10 MG QID PRN
     Route: 048
  10. PRILOSEC [Concomitant]
     Route: 048
  11. DIOVAN [Concomitant]
     Route: 048
  12. COMBIVENT [Concomitant]
     Route: 055
  13. LOPERAMIDE [Concomitant]
     Route: 048
  14. IRINOTECAN HCL [Suspect]
     Indication: SMALL CELL LUNG CANCER STAGE UNSPECIFIED
     Route: 042
     Dates: start: 20061011, end: 20061101
  15. OXALIPLATIN [Suspect]
     Indication: SMALL CELL LUNG CANCER STAGE UNSPECIFIED
     Route: 042
     Dates: start: 20061101, end: 20061101

REACTIONS (3)
  - BLOOD ALBUMIN DECREASED [None]
  - BLOOD ALKALINE PHOSPHATASE INCREASED [None]
  - GENERAL PHYSICAL HEALTH DETERIORATION [None]
